FAERS Safety Report 6838153-8 (Version None)
Quarter: 2010Q3

REPORT INFORMATION
  Report Type: 
  Country: None (occurrence: None)
  Receive Date: 20100713
  Receipt Date: 20070605
  Transmission Date: 20110219
  Serious: No
  Sender: FDA-Public Use
  Company Number: US-PFIZER INC-2007047389

PATIENT
  Sex: Female
  Weight: 66.818 kg

DRUGS (7)
  1. CHANTIX [Suspect]
     Indication: SMOKING CESSATION THERAPY
     Dates: start: 20070524
  2. CYMBALTA [Concomitant]
     Indication: DEPRESSION
  3. TRILEPTAL [Concomitant]
  4. SYNTHROID [Concomitant]
     Indication: THYROID DISORDER
  5. SIMVASTATIN [Concomitant]
  6. ASPIRINE [Concomitant]
  7. FISH OIL [Concomitant]

REACTIONS (3)
  - FATIGUE [None]
  - PRURITUS [None]
  - SOMNOLENCE [None]
